FAERS Safety Report 11139137 (Version 1)
Quarter: 2015Q2

REPORT INFORMATION
  Report Type: Spontaneous
  Country: GB (occurrence: GB)
  Receive Date: 20150527
  Receipt Date: 20150527
  Transmission Date: 20150821
  Serious: Yes (Other)
  Sender: FDA-Public Use
  Company Number: GB-JNJFOC-20150514132

PATIENT
  Age: 48 Year
  Sex: Female
  Weight: 110.21 kg

DRUGS (6)
  1. LORATADINE. [Concomitant]
     Active Substance: LORATADINE
     Route: 065
  2. COCODAMOL [Concomitant]
     Active Substance: ACETAMINOPHEN\CODEINE PHOSPHATE
     Route: 065
  3. MELOXICAM. [Concomitant]
     Active Substance: MELOXICAM
     Route: 065
  4. QUININE SULPHATE [Concomitant]
     Active Substance: QUININE SULFATE
     Route: 065
  5. NORETHISTERONE [Suspect]
     Active Substance: NORETHINDRONE
     Indication: MENORRHAGIA
     Dosage: 5 (UNITS UNSPECIFIED) FOR DOSE. CUMULATIVE DOSE 15.
     Route: 048
     Dates: start: 20150511, end: 20150513
  6. LANSOPRAZOLE. [Concomitant]
     Active Substance: LANSOPRAZOLE
     Route: 065

REACTIONS (7)
  - Fatigue [Unknown]
  - Tremor [Unknown]
  - Heart rate increased [Unknown]
  - Hyperhidrosis [Unknown]
  - Palpitations [Unknown]
  - Dry mouth [Unknown]
  - Tachyphrenia [Unknown]

NARRATIVE: CASE EVENT DATE: 20150511
